FAERS Safety Report 8528495-2 (Version None)
Quarter: 2012Q3

REPORT INFORMATION
  Report Type: 
  Country: None (occurrence: None)
  Receive Date: 20120723
  Receipt Date: 20120713
  Transmission Date: 20120928
  Serious: Yes (Hospitalization, Other)
  Sender: FDA-Public Use
  Company Number: NZ-AMGEN-AUSSP2012022010

PATIENT
  Age: 71 Year
  Sex: Female
  Weight: 92 kg

DRUGS (17)
  1. HUMIRA [Suspect]
     Indication: RHEUMATOID ARTHRITIS
     Dosage: 40 MG, 2/52
     Route: 058
     Dates: start: 20090409, end: 20101125
  2. FOLIC ACID [Concomitant]
     Dosage: UNK
  3. ENBREL [Suspect]
     Indication: RHEUMATOID ARTHRITIS
     Dosage: 50 MG, QWK
     Route: 058
     Dates: start: 20101125, end: 20120620
  4. ENBREL [Suspect]
     Dosage: 50 MG, WEEKLY
     Route: 058
     Dates: start: 20101125, end: 20120620
  5. CALCITRIOL [Concomitant]
     Dosage: 5 UG, UNK
  6. CITALOPRAM HYDROBROMIDE [Concomitant]
     Dosage: UNK
  7. PLAQUENIL [Concomitant]
     Dosage: UNK
  8. FRUSEMIDE                          /00032601/ [Concomitant]
     Dosage: UNK
  9. METHOTREXATE SODIUM [Suspect]
     Indication: RHEUMATOID ARTHRITIS
     Dosage: 7.5 MG, WEEKLY
     Route: 048
     Dates: start: 20061114
  10. ACETYLSALICYLIC ACID SRT [Concomitant]
     Dosage: UNK
  11. OMEPRAZOLE [Concomitant]
     Dosage: UNK
  12. LORAZEPAM [Concomitant]
     Dosage: UNK
  13. ZOPICLONE [Concomitant]
     Dosage: UNK
  14. SIMVASTATIN [Concomitant]
     Dosage: UNK
  15. METOPROLOL TARTRATE [Concomitant]
     Dosage: UNK
  16. PREDNISONE [Concomitant]
     Dosage: UNK
  17. LOPERAMIDE [Concomitant]
     Dosage: UNK

REACTIONS (1)
  - COLON CANCER [None]
